FAERS Safety Report 6253793-5 (Version None)
Quarter: 2009Q3

REPORT INFORMATION
  Report Type: 
  Country: None (occurrence: None)
  Receive Date: 20090702
  Receipt Date: 20090625
  Transmission Date: 20100115
  Serious: Yes (Other)
  Sender: FDA-Public Use
  Company Number: US-JNJCH-2009017548

PATIENT
  Age: 39 Year
  Sex: Male
  Weight: 74.8 kg

DRUGS (1)
  1. ROGAINE [Suspect]
     Indication: ALOPECIA
     Dosage: TEXT:^HANDFUL^ TWICE DAILY
     Route: 061
     Dates: start: 20090301, end: 20090621

REACTIONS (1)
  - LOSS OF CONSCIOUSNESS [None]
